FAERS Safety Report 6046824-9 (Version None)
Quarter: 2009Q1

REPORT INFORMATION
  Report Type: 
  Country: None (occurrence: None)
  Receive Date: 20090122
  Receipt Date: 20090116
  Transmission Date: 20090719
  Serious: Yes (Hospitalization)
  Sender: FDA-Public Use
  Company Number: A0764338A

PATIENT
  Age: 58 Year
  Sex: Male
  Weight: 113.6 kg

DRUGS (13)
  1. AVANDIA [Suspect]
     Dosage: 4MG PER DAY
     Route: 048
     Dates: start: 20040101, end: 20070101
  2. NITROGLYCERIN [Concomitant]
  3. SERTRALINE [Concomitant]
  4. LOVAZA [Concomitant]
  5. SUPER B [Concomitant]
  6. COREG [Concomitant]
  7. ASPIRIN [Concomitant]
  8. ZOLOFT [Concomitant]
  9. ACTOS [Concomitant]
  10. GEMFIBROZIL [Concomitant]
  11. NIACIN [Concomitant]
  12. LISINOPRIL [Concomitant]
  13. FLOMAX [Concomitant]

REACTIONS (1)
  - MYOCARDIAL INFARCTION [None]
